FAERS Safety Report 22308753 (Version 1)
Quarter: 2023Q2

REPORT INFORMATION
  Report Type: Spontaneous
  Country: US (occurrence: None)
  Receive Date: 20230511
  Receipt Date: 20230511
  Transmission Date: 20230722
  Serious: No
  Sender: FDA-Public Use
  Company Number: US-ROCHE-3265260

PATIENT
  Sex: Female
  Weight: 69.462 kg

DRUGS (7)
  1. OCREVUS [Suspect]
     Active Substance: OCRELIZUMAB
     Indication: Multiple sclerosis
     Dosage: 300MG FOR INITIAL DOSE THEN 300MG 2 WEEKS LATER, EVERY 6 MONTHS AFTER THAT ;ONGOING: YES
     Route: 042
     Dates: start: 20221101
  2. VITAMIN D3 [Concomitant]
     Active Substance: CHOLECALCIFEROL
  3. VITAMIN K 2 [Concomitant]
  4. VITAMIN C [Concomitant]
     Active Substance: ASCORBIC ACID
  5. TEGREEN 97 [Concomitant]
  6. VITAMINS [Concomitant]
     Active Substance: VITAMINS
  7. FIBER [Concomitant]

REACTIONS (2)
  - Depression [Not Recovered/Not Resolved]
  - Throat irritation [Not Recovered/Not Resolved]

NARRATIVE: CASE EVENT DATE: 20221101
